FAERS Safety Report 24166439 (Version 2)
Quarter: 2025Q2

REPORT INFORMATION
  Report Type: Report from Study
  Country: US (occurrence: US)
  Receive Date: 20240802
  Receipt Date: 20250408
  Transmission Date: 20250716
  Serious: Yes (Hospitalization)
  Sender: ABBVIE
  Company Number: US-ABBVIE-5861837

PATIENT
  Age: 49 Year
  Sex: Female

DRUGS (4)
  1. SKYRIZI [Suspect]
     Active Substance: RISANKIZUMAB-RZAA
     Indication: Psoriatic arthropathy
     Route: 058
     Dates: start: 20230903, end: 20230903
  2. SKYRIZI [Suspect]
     Active Substance: RISANKIZUMAB-RZAA
     Indication: Psoriasis
     Route: 058
     Dates: start: 20231001, end: 20231001
  3. SKYRIZI [Suspect]
     Active Substance: RISANKIZUMAB-RZAA
     Dosage: STRENGTH: 150MG/ML, THEN EVERY 12 WEEKS THEREAFTER
     Route: 058
     Dates: start: 202312
  4. SKYRIZI [Suspect]
     Active Substance: RISANKIZUMAB-RZAA
     Route: 058

REACTIONS (7)
  - Septic shock [Unknown]
  - Pneumonia [Recovering/Resolving]
  - Urinary tract infection [Unknown]
  - Fungal infection [Unknown]
  - Productive cough [Not Recovered/Not Resolved]
  - Psoriatic arthropathy [Unknown]
  - Corneal disorder [Unknown]

NARRATIVE: CASE EVENT DATE: 20250301
